FAERS Safety Report 6618743-8 (Version None)
Quarter: 2010Q1

REPORT INFORMATION
  Report Type: 
  Country: None (occurrence: None)
  Receive Date: 20100308
  Receipt Date: 20100303
  Transmission Date: 20100710
  Serious: Yes (Other)
  Sender: FDA-Public Use
  Company Number: CHPA2010DE03663

PATIENT
  Sex: Female
  Weight: 66 kg

DRUGS (2)
  1. NICOTINELL TTS (NCH) [Suspect]
     Indication: SMOKING CESSATION THERAPY
     Dosage: 21 MG, QD
     Route: 062
     Dates: start: 20100213, end: 20100222
  2. BUSCOPAN [Concomitant]
     Dosage: 3 DF, UNK
     Dates: start: 20100212, end: 20100213

REACTIONS (9)
  - ACNE [None]
  - BLISTER [None]
  - BLOOD PRESSURE DECREASED [None]
  - BURNING SENSATION [None]
  - ERYTHEMA [None]
  - HYPERSENSITIVITY [None]
  - PRURITUS [None]
  - RASH PUSTULAR [None]
  - SKIN DISORDER [None]
